FAERS Safety Report 9790012 (Version 1)
Quarter: 2013Q4

REPORT INFORMATION
  Report Type: Spontaneous
  Country: IN (occurrence: IN)
  Receive Date: 20131231
  Receipt Date: 20131231
  Transmission Date: 20140711
  Serious: Yes (Death)
  Sender: FDA-Public Use
  Company Number: IN-009507513-1312IND012595

PATIENT
  Age: 78 Year
  Sex: 0

DRUGS (1)
  1. JANUMET [Suspect]
     Dosage: 2 TABLETS DAILY
     Route: 048
     Dates: end: 201312

REACTIONS (1)
  - Liver disorder [Fatal]
